FAERS Safety Report 25917545 (Version 1)
Quarter: 2025Q4

REPORT INFORMATION
  Report Type: Spontaneous
  Country: US (occurrence: US)
  Receive Date: 20251014
  Receipt Date: 20251014
  Transmission Date: 20260118
  Serious: No
  Sender: ROCHE
  Company Number: US-ROCHE-10000405958

PATIENT
  Age: 52 Year
  Sex: Male

DRUGS (16)
  1. VABYSMO [Suspect]
     Active Substance: FARICIMAB-SVOA
     Indication: Retinal vein occlusion
     Route: 065
  2. VABYSMO [Suspect]
     Active Substance: FARICIMAB-SVOA
     Indication: Oedema
  3. VABYSMO [Suspect]
     Active Substance: FARICIMAB-SVOA
  4. VABYSMO [Suspect]
     Active Substance: FARICIMAB-SVOA
  5. AVASTIN [Suspect]
     Active Substance: BEVACIZUMAB
     Indication: Retinal vein occlusion
     Route: 065
  6. AVASTIN [Suspect]
     Active Substance: BEVACIZUMAB
     Indication: Oedema
  7. EYLEA [Suspect]
     Active Substance: AFLIBERCEPT
     Indication: Retinal vein occlusion
     Route: 065
  8. EYLEA [Suspect]
     Active Substance: AFLIBERCEPT
     Indication: Oedema
  9. LEVOTHYROXINE SODIUM 50 MCG ORAL TABLET [Concomitant]
  10. MINOXIDIL [Concomitant]
     Active Substance: MINOXIDIL
     Route: 048
  11. PANTOPRAZOLE 40 MG (PANTOPRAZOLE SODIUM SESQUIHYDRATE 45.1 MG) [Concomitant]
     Route: 048
  12. CEFTAZIDIME [Concomitant]
     Active Substance: CEFTAZIDIME
     Route: 050
  13. DEXAMETHASONE [Concomitant]
     Active Substance: DEXAMETHASONE
  14. VANCOMYCIN [Concomitant]
     Active Substance: VANCOMYCIN
  15. PREDNISOLONE ACETATE [Concomitant]
     Active Substance: PREDNISOLONE ACETATE
  16. DORZOLAMIDE\TIMOLOL [Concomitant]
     Active Substance: DORZOLAMIDE\TIMOLOL

REACTIONS (3)
  - Eye inflammation [Unknown]
  - Off label use [Unknown]
  - Off label use [Unknown]
